FAERS Safety Report 18983046 (Version 1)
Quarter: 2021Q1

REPORT INFORMATION
  Report Type: Spontaneous
  Country: US (occurrence: US)
  Receive Date: 20210226
  Receipt Date: 20210226
  Transmission Date: 20210420
  Serious: Yes (Disabling, Other)
  Sender: FDA-Public Use
  Company Number: None

PATIENT
  Age: 37 Year
  Sex: Female
  Weight: 60.75 kg

DRUGS (2)
  1. STRANGE CLOUDZ KRATOM [Suspect]
     Active Substance: HERBALS\MITRAGYNINE
     Indication: PRODUCT USED FOR UNKNOWN INDICATION
     Dates: start: 20210225, end: 20210226
  2. TYLENOL EXTRA STRENGTH [Concomitant]
     Active Substance: ACETAMINOPHEN

REACTIONS (5)
  - Product quality issue [None]
  - Tremor [None]
  - Vomiting [None]
  - Haemorrhage [None]
  - Loss of consciousness [None]

NARRATIVE: CASE EVENT DATE: 20210225
